FAERS Safety Report 4360445-5 (Version None)
Quarter: 2004Q2

REPORT INFORMATION
  Report Type: 
  Country: None (occurrence: None)
  Receive Date: 20040514
  Receipt Date: 20040430
  Transmission Date: 20050107
  Serious: Yes (Hospitalization)
  Sender: FDA-Public Use
  Company Number: 2004-BP-03355NB

PATIENT
  Age: 60 Year
  Sex: Male

DRUGS (5)
  1. BI-SIFROL     (PRAMIPEZOLE DIHYDROCHLORIDE) (TA) [Suspect]
     Indication: PARKINSON'S DISEASE
     Dosage: 0.375 MG (0.125 MG), PO
     Route: 048
     Dates: start: 20040409, end: 20040422
  2. DOPASOL (LEVODOPA) (TA) [Concomitant]
  3. SEROQUEL [Concomitant]
  4. CLONAZEPAM [Concomitant]
  5. CLARITH (CLARIHROMYCIN) [Concomitant]

REACTIONS (1)
  - PNEUMONIA ASPIRATION [None]
